FAERS Safety Report 12192010 (Version 10)
Quarter: 2017Q3

REPORT INFORMATION
  Report Type: Report from Study
  Country: US (occurrence: US)
  Receive Date: 20160318
  Receipt Date: 20170901
  Transmission Date: 20171127
  Serious: Yes (Other)
  Sender: FDA-Public Use
  Company Number: US-SA-2016SA053445

PATIENT
  Age: 60 Year
  Sex: Female

DRUGS (24)
  1. SOLU-MEDROL [Concomitant]
     Active Substance: METHYLPREDNISOLONE SODIUM SUCCINATE
     Route: 042
  2. ATENOLOL. [Concomitant]
     Active Substance: ATENOLOL
     Route: 065
  3. CALCIUM CARBONATE. [Concomitant]
     Active Substance: CALCIUM CARBONATE
     Dosage: 4 TABS PER DAY
     Route: 065
  4. VITAMIN B12 [Concomitant]
     Active Substance: CYANOCOBALAMIN
     Route: 065
  5. CLONAZEPAM. [Concomitant]
     Active Substance: CLONAZEPAM
     Dosage: 1 TAB EVERY NIGHT + TWICE A DAY AS NEEDED
     Route: 065
  6. PROZAC [Concomitant]
     Active Substance: FLUOXETINE HYDROCHLORIDE
     Route: 065
  7. CRANBERRY. [Concomitant]
     Active Substance: CRANBERRY
     Route: 065
  8. HYDROXYZINE HYDROCHLORIDE. [Concomitant]
     Active Substance: HYDROXYZINE HYDROCHLORIDE
     Dosage: 3-4 TIMES DAILY
     Route: 065
  9. VALACICLOVIR HYDROCHLORIDE [Concomitant]
     Active Substance: VALACYCLOVIR HYDROCHLORIDE
     Dosage: TAB PER DAY (BEFORE + AFTER INFUSIONS)
     Route: 065
  10. LEMTRADA [Suspect]
     Active Substance: ALEMTUZUMAB
     Indication: MULTIPLE SCLEROSIS
     Route: 041
     Dates: start: 20160216, end: 20160219
  11. LEVOTHYROXINE. [Concomitant]
     Active Substance: LEVOTHYROXINE
     Route: 065
  12. ZOLPIDEM [Concomitant]
     Active Substance: ZOLPIDEM\ZOLPIDEM TARTRATE
     Dosage: BEFORE BED
     Route: 065
  13. VITAMIN D3 [Concomitant]
     Active Substance: CHOLECALCIFEROL
     Route: 065
  14. GABAPENTIN. [Concomitant]
     Active Substance: GABAPENTIN
     Indication: MYALGIA
     Route: 065
  15. AMPYRA [Concomitant]
     Active Substance: DALFAMPRIDINE
     Route: 065
  16. TIZANIDINE. [Concomitant]
     Active Substance: TIZANIDINE
     Route: 048
  17. OLANZAPINE. [Concomitant]
     Active Substance: OLANZAPINE
     Dosage: 1 TAB DAY BEFORE, DAY OF, DAY AFTER SOLUMEDROL?INFUSION
     Route: 065
  18. NEURONTIN [Concomitant]
     Active Substance: GABAPENTIN
  19. BACLOFEN. [Concomitant]
     Active Substance: BACLOFEN
     Route: 065
  20. RANITIDINE. [Concomitant]
     Active Substance: RANITIDINE
     Dosage: 1 TAB PER DAY (BEFORE + AFTER INFUSIONS)
     Route: 065
  21. SIMVASTATIN. [Concomitant]
     Active Substance: SIMVASTATIN
     Route: 065
  22. COENZYME Q10 [Concomitant]
     Active Substance: UBIDECARENONE
     Route: 065
  23. BIOTIN [Concomitant]
     Active Substance: BIOTIN
     Route: 065
  24. CRANBERRY. [Concomitant]
     Active Substance: CRANBERRY
     Route: 065
     Dates: start: 20161213

REACTIONS (28)
  - Pain [Unknown]
  - Cough [Recovered/Resolved]
  - Oropharyngeal pain [Recovered/Resolved]
  - Muscle spasms [Unknown]
  - Bedridden [Recovered/Resolved]
  - General physical health deterioration [Not Recovered/Not Resolved]
  - Gingival pain [Unknown]
  - Gingival erythema [Unknown]
  - Fatigue [Not Recovered/Not Resolved]
  - Condition aggravated [Not Recovered/Not Resolved]
  - Balance disorder [Not Recovered/Not Resolved]
  - Gait inability [Unknown]
  - Skin cancer [Not Recovered/Not Resolved]
  - Epistaxis [Recovered/Resolved]
  - Urinary incontinence [Unknown]
  - Oral herpes [Unknown]
  - Impaired driving ability [Not Recovered/Not Resolved]
  - Precancerous skin lesion [Unknown]
  - Rosacea [Unknown]
  - Dry skin [Unknown]
  - Feeling cold [Not Recovered/Not Resolved]
  - Movement disorder [Unknown]
  - Blood pressure fluctuation [Not Recovered/Not Resolved]
  - Nasopharyngitis [Unknown]
  - Malaise [Unknown]
  - Insomnia [Unknown]
  - Temperature intolerance [Not Recovered/Not Resolved]
  - Bladder disorder [Unknown]

NARRATIVE: CASE EVENT DATE: 2016
